FAERS Safety Report 7475748-5 (Version None)
Quarter: 2011Q2

REPORT INFORMATION
  Report Type: 
  Country: None (occurrence: None)
  Receive Date: 20110504
  Receipt Date: 20110420
  Transmission Date: 20111010
  Serious: Yes (Death)
  Sender: FDA-Public Use
  Company Number: JP-2011-10667

PATIENT

DRUGS (12)
  1. SAMSCA [Suspect]
     Indication: CARDIAC FAILURE
     Dosage: QD, PARENTERAL
     Route: 051
     Dates: start: 20110418, end: 20110419
  2. DIGOXIN [Concomitant]
  3. LASIX [Concomitant]
  4. FLUITRAN (TRICHLOMETHIAZIDE) [Concomitant]
  5. DEPAS (ETIZOLAM) [Concomitant]
  6. LUPRAC (TORASEMIDE) [Concomitant]
  7. RACOL (PARENTERAL NUTRITION) [Concomitant]
  8. SODIUM CHLORIDE 0.9% [Concomitant]
  9. SIGMART (NICORADIL) [Concomitant]
  10. TRYPTANOL (AMITRIPTYLINE) [Concomitant]
  11. EFFORTIL (ETLEFRINE HYDROCHLORIDE) [Concomitant]
  12. GABAPENTIN [Concomitant]

REACTIONS (3)
  - CARDIAC FAILURE [None]
  - CONDITION AGGRAVATED [None]
  - NO THERAPEUTIC RESPONSE [None]
